FAERS Safety Report 13334643 (Version 3)
Quarter: 2017Q2

REPORT INFORMATION
  Report Type: Other
  Country: FI (occurrence: FI)
  Receive Date: 20170314
  Receipt Date: 20170407
  Transmission Date: 20170830
  Serious: Yes (Hospitalization, Other)
  Sender: FDA-Public Use
  Company Number: FI-ASTELLAS-2017US009330

PATIENT
  Age: 81 Year
  Sex: Female

DRUGS (9)
  1. BETMIGA [Suspect]
     Active Substance: MIRABEGRON
     Indication: URGE INCONTINENCE
     Route: 048
     Dates: start: 20161024, end: 20161210
  2. PEGORION [Concomitant]
     Active Substance: POLYETHYLENE GLYCOL 4000
     Indication: CONSTIPATION
     Route: 048
  3. NEUROBION FORTE                    /00358301/ [Concomitant]
     Indication: VITAMIN B COMPLEX DEFICIENCY
     Route: 048
  4. MEMANTINE                          /00646902/ [Concomitant]
     Active Substance: MEMANTINE HYDROCHLORIDE
     Indication: DEMENTIA
     Route: 048
  5. PARACETAMOL [Concomitant]
     Active Substance: ACETAMINOPHEN
     Indication: PRODUCT USED FOR UNKNOWN INDICATION
     Dosage: 100 MG, ONCE DAILY (MAX. 3000 MG DAILY)
     Route: 048
  6. CALCICHEW D3 FORTE [Concomitant]
     Active Substance: CALCIUM\CHOLECALCIFEROL
     Indication: OSTEOPENIA
     Dosage: 500MG/10MCG (1 DF), ONCE DAILY
     Route: 048
  7. BETMIGA [Suspect]
     Active Substance: MIRABEGRON
     Dosage: UNK UNK, UNKNOWN FREQ.
     Route: 065
     Dates: start: 20161216
  8. PRONAXEN [Concomitant]
     Active Substance: NAPROXEN
     Indication: PRODUCT USED FOR UNKNOWN INDICATION
     Dosage: UNK UNK, AS NEEDED
     Route: 065
  9. SOMAC [Concomitant]
     Active Substance: PANTOPRAZOLE SODIUM
     Indication: GASTROOESOPHAGEAL REFLUX DISEASE
     Route: 048

REACTIONS (5)
  - Concussion [Recovering/Resolving]
  - Dizziness [Recovering/Resolving]
  - Blood pressure increased [Unknown]
  - Fall [Recovering/Resolving]
  - Intracranial haematoma [Recovering/Resolving]

NARRATIVE: CASE EVENT DATE: 201611
